FAERS Safety Report 19281688 (Version 2)
Quarter: 2021Q3

REPORT INFORMATION
  Report Type: Spontaneous
  Country: JP (occurrence: JP)
  Receive Date: 20210520
  Receipt Date: 20210825
  Transmission Date: 20211014
  Serious: Yes (Other)
  Sender: FDA-Public Use
  Company Number: JP-JAZZ-2021-JP-001123

PATIENT
  Age: 3 Year
  Sex: Female
  Weight: 14.8 kg

DRUGS (4)
  1. NONTHRON [Concomitant]
     Dosage: UNK
     Dates: start: 20210120, end: 20210120
  2. NONTHRON [Concomitant]
     Indication: PRODUCT USED FOR UNKNOWN INDICATION
     Dosage: UNK
     Dates: start: 20210107, end: 20210107
  3. DEFITELIO [Suspect]
     Active Substance: DEFIBROTIDE SODIUM
     Indication: VENOOCCLUSIVE LIVER DISEASE
     Dosage: 6.25 MILLIGRAM PER KILOGRAM (25 MG/KG DAILY)
     Route: 042
     Dates: start: 20210106, end: 20210219
  4. METHYLPREDNISOLONE. [Concomitant]
     Active Substance: METHYLPREDNISOLONE
     Indication: PRODUCT USED FOR UNKNOWN INDICATION

REACTIONS (2)
  - Respiratory failure [Unknown]
  - Gastrointestinal haemorrhage [Recovered/Resolved]

NARRATIVE: CASE EVENT DATE: 20210219
